FAERS Safety Report 8920700 (Version 1)
Quarter: 2012Q4

REPORT INFORMATION
  Report Type: 
  Country: JP (occurrence: JP)
  Receive Date: 20121121
  Receipt Date: 20121121
  Transmission Date: 20130627
  Serious: Yes (Death, Other)
  Sender: FDA-Public Use
  Company Number: JP-ROCHE-1138292

PATIENT
  Age: 64 Year
  Sex: Female
  Weight: 55 kg

DRUGS (16)
  1. AVASTIN [Suspect]
     Indication: COLON CANCER METASTATIC
     Route: 041
     Dates: start: 20100629, end: 20110608
  2. 5-FU [Suspect]
     Indication: COLON CANCER METASTATIC
     Dosage: Dosage is uncertain.
     Route: 040
     Dates: start: 20100629, end: 20100723
  3. 5-FU [Suspect]
     Indication: COLON CANCER METASTATIC
     Dosage: Dosage is uncertain.
     Route: 041
     Dates: start: 20100629, end: 20100723
  4. 5-FU [Suspect]
     Indication: COLON CANCER METASTATIC
     Dosage: Dosage is uncertain.
     Route: 040
     Dates: start: 20100820, end: 20110422
  5. 5-FU [Suspect]
     Indication: COLON CANCER METASTATIC
     Dosage: Dosage is uncertain.
     Route: 041
     Dates: start: 20100820, end: 20110422
  6. 5-FU [Suspect]
     Indication: COLON CANCER METASTATIC
     Dosage: Dosage is uncertain.
     Route: 040
     Dates: start: 20110506, end: 20110608
  7. 5-FU [Suspect]
     Indication: COLON CANCER METASTATIC
     Dosage: Dosage is uncertain.
     Route: 041
     Dates: start: 20110506, end: 20110608
  8. IRINOTECAN HYDROCHLORIDE [Suspect]
     Indication: COLON CANCER METASTATIC
     Dosage: Dosage is uncertain.
     Route: 041
     Dates: start: 20100629, end: 20100723
  9. IRINOTECAN HYDROCHLORIDE [Suspect]
     Indication: COLON CANCER METASTATIC
     Dosage: Dosage is uncertain.
     Route: 041
     Dates: start: 20110506, end: 20110608
  10. ISOVORIN [Suspect]
     Indication: COLON CANCER METASTATIC
     Dosage: Dosage is uncertain.
     Route: 041
     Dates: start: 20100629, end: 20100723
  11. ISOVORIN [Suspect]
     Indication: COLON CANCER METASTATIC
     Dosage: Dosage is uncertain.
     Route: 041
     Dates: start: 20100820, end: 20110422
  12. ISOVORIN [Suspect]
     Indication: COLON CANCER METASTATIC
     Dosage: Dosage is uncertain.
     Route: 041
     Dates: start: 20110506, end: 20110608
  13. NAPROXEN [Suspect]
     Indication: TUMOUR ASSOCIATED FEVER
     Route: 048
     Dates: start: 20101105, end: 20110615
  14. ELPLAT [Concomitant]
     Indication: COLON CANCER METASTATIC
     Dosage: Dosage is uncertain.
     Route: 041
     Dates: start: 20100820, end: 20110422
  15. LYRICA [Concomitant]
     Route: 048
     Dates: start: 20110422, end: 20110615
  16. CALONAL [Concomitant]
     Route: 048
     Dates: start: 20110318, end: 20110615

REACTIONS (7)
  - Gastric perforation [Fatal]
  - Peritonitis [Fatal]
  - Gastric ulcer [Unknown]
  - Sepsis [Unknown]
  - Melaena [Unknown]
  - Decreased appetite [Unknown]
  - Stomatitis [Unknown]
